FAERS Safety Report 8816073 (Version 1)
Quarter: 2012Q4

REPORT INFORMATION
  Report Type: 
  Country: US (occurrence: US)
  Receive Date: 20120928
  Receipt Date: 20120928
  Transmission Date: 20130627
  Serious: Yes (Other)
  Sender: FDA-Public Use
  Company Number: US-BAYER-2012-099301

PATIENT
  Sex: Female

DRUGS (5)
  1. MIRENA [Suspect]
     Dosage: UNK
     Dates: start: 201102
  2. BAYER GENUINE ASPIRIN ORIGINAL STRENGTH [Suspect]
  3. ALEVE CAPLET/TABLET,MIDOL EXTENDED RELIEF CAPLET [Suspect]
     Route: 048
  4. TYLENOL [Suspect]
  5. IBUPROFEN [Suspect]
     Dosage: 800 mg, UNK

REACTIONS (7)
  - Back pain [None]
  - Abdominal pain [None]
  - Vaginal haemorrhage [Not Recovered/Not Resolved]
  - Depression [Not Recovered/Not Resolved]
  - Abdominal pain [Not Recovered/Not Resolved]
  - Weight fluctuation [Not Recovered/Not Resolved]
  - Thyroid disorder [Not Recovered/Not Resolved]
